FAERS Safety Report 19485483 (Version 7)
Quarter: 2021Q3

REPORT INFORMATION
  Report Type: Other
  Country: GB (occurrence: GB)
  Receive Date: 20210702
  Receipt Date: 20210917
  Transmission Date: 20211014
  Serious: Yes (Death, Other)
  Sender: FDA-Public Use
  Company Number: GB-CELLTRION INC.-2019GB023124

PATIENT

DRUGS (80)
  1. TRASTUZUMAB. [Suspect]
     Active Substance: TRASTUZUMAB
     Dosage: 400 MILLIGRAM, EVERY 3 WEEKS
     Route: 042
     Dates: start: 20170614, end: 20180425
  2. TRASTUZUMAB EMTANSINE [Suspect]
     Active Substance: ADO-TRASTUZUMAB EMTANSINE
     Indication: BREAST CANCER
     Dosage: 200 MILLIGRAM,Q3WK(DOSE FORM: 230) (CUMULATIVE DOSE: 219.04762 MG)
     Route: 042
     Dates: start: 20190627, end: 20190718
  3. ABRAXANE [Suspect]
     Active Substance: PACLITAXEL
     Dosage: 450 MG, EVERY 3 WEEKS
     Route: 042
     Dates: start: 20170614, end: 20170614
  4. CHLORHEXIDINE GLUCONATE. [Concomitant]
     Active Substance: CHLORHEXIDINE GLUCONATE
     Dosage: 10 MILLILITER, Q6H
     Route: 061
  5. TINZAPARIN [Concomitant]
     Active Substance: TINZAPARIN
     Dosage: 4500 IU, 1X/DAY
     Route: 058
     Dates: start: 20190918
  6. CLOBETASOL PROPIONATE. [Concomitant]
     Active Substance: CLOBETASOL PROPIONATE
     Dosage: 0.5 DAY
     Route: 061
     Dates: start: 20170210
  7. FUSIDIC ACID [Concomitant]
     Active Substance: FUSIDIC ACID
     Dosage: UNK
     Route: 065
     Dates: start: 201905
  8. AMOXICILLIN. [Concomitant]
     Active Substance: AMOXICILLIN
     Dosage: 625 MG, 0.33 PER DAY
     Route: 048
     Dates: start: 20201211, end: 20201216
  9. SANDO K [POTASSIUM BICARBONATE; POTASSIUM CHLORIDE] [Concomitant]
     Dosage: UNK,UNK DAILY
     Route: 048
     Dates: start: 20170525
  10. VANCOMYCIN [Concomitant]
     Active Substance: VANCOMYCIN
     Dosage: 125 MG, 4X/DAY
     Route: 048
     Dates: start: 20201030
  11. VANCOMYCIN [Concomitant]
     Active Substance: VANCOMYCIN
     Dosage: 500 MG, 4X/DAY
     Route: 048
     Dates: start: 20201104, end: 20201113
  12. TINZAPARIN [Concomitant]
     Active Substance: TINZAPARIN
     Dosage: 4500 INTERNATIONAL UNIT, QD
     Route: 058
     Dates: start: 20190916
  13. CHLORPHENAMINE [Concomitant]
     Active Substance: CHLORPHENIRAMINE MALEATE
     Dosage: 4 MILLIGRAM, Q6H
     Route: 048
     Dates: start: 20170526
  14. CARMELLOSE SODIUM [Concomitant]
     Active Substance: CARBOXYMETHYLCELLULOSE SODIUM
     Dosage: UNK, 4X/DAY
     Route: 060
     Dates: start: 20170526
  15. TRASTUZUMAB EMTANSINE [Suspect]
     Active Substance: ADO-TRASTUZUMAB EMTANSINE
     Dosage: 200 MILLIGRAM, EVERY 3 WEEKS
     Route: 042
     Dates: start: 20190627, end: 20190718
  16. ABRAXANE [Suspect]
     Active Substance: PACLITAXEL
     Dosage: 300 MG, EVERY 3 WEEKS, DISCONTINUED AS PLANNED NUMBER OF CYCLES WERE COMPLETED
     Route: 042
     Dates: start: 20170816, end: 20170906
  17. TRANEXAMIC ACID. [Concomitant]
     Active Substance: TRANEXAMIC ACID
     Dosage: UNK
     Route: 065
     Dates: start: 20190722
  18. CALCICHEW D3 FORTE [Concomitant]
     Active Substance: CALCIUM\CHOLECALCIFEROL
     Dosage: UNK, Q8H
     Route: 048
     Dates: start: 20170525
  19. LOPERAMIDE [Concomitant]
     Active Substance: LOPERAMIDE
     Dosage: 2 MG, PRN (AS NEEDED)
     Route: 048
     Dates: start: 20170613
  20. DOMPERIDONE [Concomitant]
     Active Substance: DOMPERIDONE
     Dosage: 10 MG 0.33 DAY
     Route: 048
     Dates: start: 20170523
  21. METRONIDAZOLE. [Concomitant]
     Active Substance: METRONIDAZOLE
     Dosage: UNK
     Dates: start: 20200909, end: 20200914
  22. METRONIDAZOLE. [Concomitant]
     Active Substance: METRONIDAZOLE
     Dosage: 400 MILLIGRAM, MONTHLY (STOP DATE: ???NOV?2020)
     Route: 048
     Dates: start: 20201116, end: 202011
  23. AMOXICILLIN. [Concomitant]
     Active Substance: AMOXICILLIN
     Indication: ABDOMINAL PAIN
     Dosage: UNK
  24. TRASTUZUMAB. [Suspect]
     Active Substance: TRASTUZUMAB
     Dosage: DISCONTINUED DUE TO DISEASE PROGRESSION AND FURTHER ANTICANCER TREATMENT. 378 MILLIGRAM, Q3W
     Route: 042
     Dates: start: 20180516, end: 20190327
  25. DOCETAXEL. [Suspect]
     Active Substance: DOCETAXEL
     Indication: HER2 POSITIVE BREAST CANCER
     Dosage: 130 MILLIGRAM, Q3WK
     Route: 042
     Dates: start: 20170525, end: 20170525
  26. CALCICHEW D3 FORTE [Concomitant]
     Active Substance: CALCIUM\CHOLECALCIFEROL
     Dosage: UNK, 0.33 DAY
     Route: 048
     Dates: start: 20170525
  27. LANSOPRAZOLE. [Concomitant]
     Active Substance: LANSOPRAZOLE
     Dosage: 30 MG, EVERY DAY
     Route: 048
     Dates: start: 20190730
  28. LOPERAMIDE [Concomitant]
     Active Substance: LOPERAMIDE
     Dosage: 2 MILLIGRAM AS NECESSARY
     Route: 048
     Dates: start: 20170613
  29. TINZAPARIN [Concomitant]
     Active Substance: TINZAPARIN
     Dosage: 12000 IU DAILY
     Route: 058
     Dates: start: 20170713
  30. CHLORPHENAMINE [Concomitant]
     Active Substance: CHLORPHENIRAMINE MALEATE
     Dosage: 4 MG, 0.25 DAY
     Route: 048
     Dates: start: 20170526
  31. DERMOVATE [Concomitant]
     Active Substance: CLOBETASOL
     Indication: URTICARIA PAPULAR
     Dosage: 0.1 %, DAILY
     Route: 061
     Dates: start: 20170210
  32. DOCETAXEL. [Suspect]
     Active Substance: DOCETAXEL
     Indication: BREAST CANCER
     Dosage: 130 MILLIGRAM, EVERY 3 WEEKS
     Route: 042
     Dates: start: 20170525, end: 20170525
  33. TRASTUZUMAB EMTANSINE [Suspect]
     Active Substance: ADO-TRASTUZUMAB EMTANSINE
     Dosage: 160 MG, EVERY 3 WEEKS (DOSE FORM: 230) (CUMULATIVE DOSE: 655.2381 MG) (DOSAGE FORM: UNKNOWN)
     Route: 042
     Dates: start: 20190829, end: 20200326
  34. PERTUZUMAB. [Suspect]
     Active Substance: PERTUZUMAB
     Indication: BREAST CANCER
     Dosage: 420 MILLIGRAM, EVERY 3 WEEKS (DOSAGE FORM: 230) MAINTENANCE DOSE. DISCONTINUED DUE TO DISEASE PROGRE
     Route: 042
     Dates: start: 20170614, end: 20190327
  35. CAPECITABINE. [Suspect]
     Active Substance: CAPECITABINE
     Indication: BREAST CANCER
     Dosage: 1300 MG
     Route: 048
     Dates: start: 20201020
  36. TAXOTERE [Suspect]
     Active Substance: DOCETAXEL
     Indication: HER2 POSITIVE BREAST CANCER
     Dosage: 130 MG, 3/WEEK
     Route: 042
     Dates: start: 20170525, end: 20170525
  37. CALCICHEW D3 FORTE [Concomitant]
     Active Substance: CALCIUM\CHOLECALCIFEROL
     Dosage: UNK UNK, 3X/DAY
     Route: 048
     Dates: start: 20170525
  38. TINZAPARIN [Concomitant]
     Active Substance: TINZAPARIN
     Dosage: 12000 UNIT
     Route: 058
     Dates: start: 20170713
  39. IKERVIS [Concomitant]
     Active Substance: CYCLOSPORINE
     Indication: BLEPHARITIS
     Dosage: UNK
     Route: 047
     Dates: start: 201708
  40. AMITRIPTYLINE HYDROCHLORIDE. [Concomitant]
     Active Substance: AMITRIPTYLINE HYDROCHLORIDE
     Indication: DEPRESSED MOOD
     Dosage: 5 MILLIGRAM, 1X/DAY
     Route: 048
     Dates: start: 20190827
  41. CHLORPHENAMINE [Concomitant]
     Active Substance: CHLORPHENIRAMINE MALEATE
     Dosage: 4 MILLIGRAM, QID
     Route: 048
     Dates: start: 20170526
  42. DOMPERIDONE [Concomitant]
     Active Substance: DOMPERIDONE
     Dosage: 10 MILLIGRAM, TID
     Route: 048
     Dates: start: 20170523
  43. CARMELLOSE SODIUM [Concomitant]
     Active Substance: CARBOXYMETHYLCELLULOSE SODIUM
     Dosage: UNK, QID
     Route: 060
     Dates: start: 20170526
  44. TRASTUZUMAB. [Suspect]
     Active Substance: TRASTUZUMAB
     Dosage: 378 MILLIGRAM, EVERY 3 WEEKS
     Route: 042
     Dates: start: 20180516, end: 20190327
  45. PACLITAXEL. [Suspect]
     Active Substance: PACLITAXEL
     Dosage: 300 MILLIGRAM Q3WK (CUMULATIVE DOSE: 9385.714 MG)
     Route: 042
     Dates: start: 20170816, end: 20170906
  46. PACLITAXEL. [Suspect]
     Active Substance: PACLITAXEL
     Dosage: 375 MILLIGRAM, EVERY 3 WEEKS
     Route: 042
     Dates: start: 20170705, end: 20170726
  47. PACLITAXEL. [Suspect]
     Active Substance: PACLITAXEL
     Dosage: 450 MILLIGRAM, EVERY 3 WEEKS
     Route: 042
     Dates: start: 20170614, end: 20170614
  48. PACLITAXEL. [Suspect]
     Active Substance: PACLITAXEL
     Dosage: 300 MILLIGRAM EVERY 3 WEEKS
     Route: 042
     Dates: start: 20170816, end: 20170906
  49. TRASTUZUMAB EMTANSINE [Suspect]
     Active Substance: ADO-TRASTUZUMAB EMTANSINE
     Indication: HER2 POSITIVE BREAST CANCER
     Dosage: 240 MILLIGRAM, EVERY 3 WEEKS (DOSE FORM: 230) (CUMULATIVE DOSE: 434.2857 MG)
     Route: 042
     Dates: start: 20190427, end: 20190606
  50. CAPECITABINE. [Suspect]
     Active Substance: CAPECITABINE
     Indication: HER2 POSITIVE BREAST CANCER
     Dosage: 1300 MG
     Route: 048
     Dates: start: 20201020
  51. APIXABAN [Concomitant]
     Active Substance: APIXABAN
     Dosage: 2.5 MG, 0.5 PER DAY
     Route: 048
     Dates: start: 20190819, end: 20190917
  52. CETIRIZINE [Concomitant]
     Active Substance: CETIRIZINE HYDROCHLORIDE
     Indication: URTICARIA PAPULAR
     Dosage: 10 MG, EVERY DAY
     Route: 048
     Dates: start: 20190313
  53. SANDO K [POTASSIUM BICARBONATE; POTASSIUM CHLORIDE] [Concomitant]
     Dosage: UNK, 0.5 DAY
     Route: 048
     Dates: start: 20170525
  54. LANSOPRAZOLE. [Concomitant]
     Active Substance: LANSOPRAZOLE
     Dosage: 30 MG, QD
     Route: 048
     Dates: start: 20190827
  55. CHLORHEXIDINE GLUCONATE. [Concomitant]
     Active Substance: CHLORHEXIDINE GLUCONATE
     Dosage: 10 ML, 0.25 DAY
     Route: 061
     Dates: start: 20170525
  56. CHLORPHENAMINE [Concomitant]
     Active Substance: CHLORPHENIRAMINE MALEATE
     Dosage: 4 MG, 0.25 DAY
     Route: 048
     Dates: start: 20170526
  57. DOMPERIDONE [Concomitant]
     Active Substance: DOMPERIDONE
     Dosage: 10 MILLIGRAM, THRICE A DAY
     Route: 048
     Dates: start: 20170523
  58. SALIVA SUBSTITUTE [Concomitant]
     Active Substance: CARBOXYMETHYLCELLULOSE SODIUM\DEVICE\SORBINICATE
     Dosage: UNK, 0.25 DAY
     Route: 060
     Dates: start: 20170526
  59. AMOXICILLIN. [Concomitant]
     Active Substance: AMOXICILLIN
     Indication: PYREXIA
     Dosage: 625 MILLIGRAM, TID
     Route: 048
     Dates: start: 20201211, end: 20201216
  60. TRASTUZUMAB. [Suspect]
     Active Substance: TRASTUZUMAB
     Indication: BREAST CANCER
     Dosage: 400 MILLIGRAM, EVERY 3 WEEKS
     Route: 042
     Dates: start: 20170614, end: 20180425
  61. TRASTUZUMAB. [Suspect]
     Active Substance: TRASTUZUMAB
     Dosage: 525 MILLIGRAM (LOADING DOSE)
     Route: 042
     Dates: start: 20170524, end: 20170524
  62. PERTUZUMAB. [Suspect]
     Active Substance: PERTUZUMAB
     Dosage: 840 MG, LOADING DOSE
     Route: 042
     Dates: start: 20170524, end: 20170524
  63. PARACETAMOL [Concomitant]
     Active Substance: ACETAMINOPHEN
     Dosage: 1 INTERNATIONAL UNIT (IU), AS NECESSARY
     Route: 048
     Dates: start: 20170525
  64. SANDO K [POTASSIUM BICARBONATE; POTASSIUM CHLORIDE] [Concomitant]
     Dosage: UNK, BID
     Dates: start: 20170525
  65. CHLORPHENAMINE [Concomitant]
     Active Substance: CHLORPHENIRAMINE MALEATE
     Dosage: 16 MG, DAILY
     Route: 048
     Dates: start: 20170526
  66. TRASTUZUMAB. [Suspect]
     Active Substance: TRASTUZUMAB
     Indication: HER2 POSITIVE BREAST CANCER
     Dosage: 525 MILLIGRAM (LOADING DOSE)(DOSAGE FORM: 293)
     Route: 042
     Dates: start: 20170524, end: 20170524
  67. TRASTUZUMAB. [Suspect]
     Active Substance: TRASTUZUMAB
     Dosage: 378 MILLIGRAM, EVERY 3 WEEKS  (DOSE FORM: 356, CUMULATIVE DOSE: 6912.0 MG)
     Route: 042
     Dates: start: 20180516, end: 20190327
  68. PACLITAXEL. [Suspect]
     Active Substance: PACLITAXEL
     Indication: HER2 POSITIVE BREAST CANCER
     Dosage: 450 MILLIGRAM, EVERY 3 WEEKS
     Route: 042
     Dates: start: 20170614, end: 20170614
  69. PACLITAXEL. [Suspect]
     Active Substance: PACLITAXEL
     Indication: BREAST CANCER
     Dosage: 375 MILLIGRAM,Q3WK  (CUMULATIVE DOSE: 12482.143 MG)
     Route: 042
     Dates: start: 20170705, end: 20170726
  70. PERTUZUMAB. [Suspect]
     Active Substance: PERTUZUMAB
     Indication: HER2 POSITIVE BREAST CANCER
     Dosage: 840 MG. 1 TOTAL, LOADING DOSE (DOSAGE FORM: 230)
     Route: 042
     Dates: start: 20170524, end: 20170524
  71. ABRAXANE [Suspect]
     Active Substance: PACLITAXEL
     Indication: HER2 POSITIVE BREAST CANCER
     Dosage: 375 MG, EVERY 3 WEEKS
     Route: 042
     Dates: start: 20170705, end: 20170726
  72. APIXABAN [Concomitant]
     Active Substance: APIXABAN
     Dosage: 2.5 MG, 2X/DAY
     Route: 048
     Dates: start: 20190819, end: 20190917
  73. CALCICHEW D3 FORTE [Concomitant]
     Active Substance: CALCIUM\CHOLECALCIFEROL
     Dosage: UNK, DAILY
     Route: 048
     Dates: start: 20170525
  74. VANCOMYCIN [Concomitant]
     Active Substance: VANCOMYCIN
     Dosage: 125 MG, 0.25 PER DAY
     Route: 048
     Dates: start: 20201030
  75. VANCOMYCIN [Concomitant]
     Active Substance: VANCOMYCIN
     Dosage: 500 MG, 0.25 PER DAY
     Route: 048
     Dates: start: 20201104, end: 20201113
  76. CHLORHEXIDINE GLUCONATE. [Concomitant]
     Active Substance: CHLORHEXIDINE GLUCONATE
     Dosage: 40 ML, DAILY; 10 MILLILITER, QID
     Route: 061
     Dates: start: 20170525
  77. CHLORHEXIDINE GLUCONATE. [Concomitant]
     Active Substance: CHLORHEXIDINE GLUCONATE
     Dosage: 10 MILLILITER, Q6H
     Route: 061
     Dates: start: 20170525
  78. CLOBETASOL PROPIONATE. [Concomitant]
     Active Substance: CLOBETASOL PROPIONATE
     Dosage: UNK, TWICE A DAY
     Route: 061
     Dates: start: 20170210
  79. ZOLEDRONIC ACID [Concomitant]
     Active Substance: ZOLEDRONIC ACID
     Indication: PROPHYLAXIS
     Dosage: 4 MILLIGRAM (EVERY 3?4 WEEKS)
     Route: 042
     Dates: start: 20170525
  80. CARMELLOSE SODIUM [Concomitant]
     Active Substance: CARBOXYMETHYLCELLULOSE SODIUM
     Dosage: UNK UNK, Q6H
     Route: 060
     Dates: start: 20170526

REACTIONS (7)
  - Device related infection [Not Recovered/Not Resolved]
  - Epistaxis [Not Recovered/Not Resolved]
  - Biliary sepsis [Recovered/Resolved]
  - Tenosynovitis [Recovered/Resolved]
  - Off label use [Unknown]
  - Sinus tachycardia [Unknown]
  - Neoplasm progression [Fatal]

NARRATIVE: CASE EVENT DATE: 201904
